FAERS Safety Report 8815490 (Version 2)
Quarter: 2012Q4

REPORT INFORMATION
  Report Type: 
  Country: FR (occurrence: FR)
  Receive Date: 20120928
  Receipt Date: 20121003
  Transmission Date: 20130627
  Serious: Yes (Hospitalization)
  Sender: FDA-Public Use
  Company Number: FR-GLAXOSMITHKLINE-B0831262A

PATIENT
  Age: 57 None
  Sex: Male

DRUGS (15)
  1. RANIPLEX [Suspect]
     Indication: PRODUCT USED FOR UNKNOWN INDICATION
     Route: 048
     Dates: end: 20120504
  2. VFEND [Suspect]
     Indication: ASPERGILLOSIS
     Route: 048
     Dates: end: 20120504
  3. TAVANIC [Suspect]
     Indication: LUNG INFECTION
     Dosage: 500MG per day
     Route: 048
     Dates: end: 20120506
  4. ENTOCORT [Suspect]
     Indication: CROHN^S DISEASE
     Dosage: 3MG Three times per day
     Route: 048
     Dates: end: 20120504
  5. ATARAX [Suspect]
     Indication: ANXIETY
     Route: 048
     Dates: end: 20120504
  6. SPECIAFOLDINE [Suspect]
     Indication: ANAEMIA
     Dosage: 5MG per day
     Route: 048
     Dates: end: 20120504
  7. RIVOTRIL [Suspect]
     Indication: EPILEPSY
     Route: 048
     Dates: end: 20120504
  8. ZELITREX [Concomitant]
     Indication: ANTIVIRAL PROPHYLAXIS
     Dosage: 500MG Twice per day
     Route: 048
  9. NOXAFIL [Concomitant]
     Indication: ASPERGILLOSIS
     Dosage: 200MG Three times per day
     Route: 048
     Dates: start: 20120504
  10. BACTRIM FORTE [Concomitant]
     Indication: LUNG INFECTION
     Route: 048
  11. TRIATEC [Concomitant]
     Indication: ISCHAEMIC HEART DISEASE PROPHYLAXIS
     Dosage: 5MG per day
     Route: 048
  12. CARDENSIEL [Concomitant]
     Indication: CARDIAC FAILURE
     Dosage: 2.5MG Per day
     Route: 048
  13. CORTANCYL [Concomitant]
     Indication: CHRONIC GRAFT VERSUS HOST DISEASE IN SKIN
     Dosage: 40MG per day
     Route: 048
     Dates: end: 20120505
  14. SOLUMEDROL [Concomitant]
     Indication: CHRONIC GRAFT VERSUS HOST DISEASE IN SKIN
     Dosage: 40MG per day
     Route: 042
     Dates: start: 20120505, end: 20120524
  15. INEXIUM [Concomitant]
     Indication: GASTROOESOPHAGEAL REFLUX DISEASE
     Dosage: 40MG Twice per day
     Route: 048

REACTIONS (14)
  - Thrombotic microangiopathy [Recovered/Resolved]
  - Epilepsy [Recovered/Resolved]
  - General physical health deterioration [Recovered/Resolved]
  - Diarrhoea [Recovered/Resolved]
  - Tremor [Recovered/Resolved]
  - Loss of consciousness [Recovered/Resolved]
  - Confusional state [Recovered/Resolved]
  - Flat affect [Recovered/Resolved]
  - Aphasia [Recovered/Resolved]
  - Thrombocytopenia [Recovered/Resolved]
  - Renal failure acute [Recovered/Resolved]
  - Pulmonary alveolar haemorrhage [Recovered/Resolved]
  - Acute respiratory distress syndrome [Recovered/Resolved]
  - Acute coronary syndrome [Recovered/Resolved]
